FAERS Safety Report 13819655 (Version 2)
Quarter: 2018Q1

REPORT INFORMATION
  Report Type: Report from Study
  Country: US (occurrence: US)
  Receive Date: 20170731
  Receipt Date: 20180201
  Transmission Date: 20180508
  Serious: No
  Sender: FDA-Public Use
  Company Number: US-EXELIXIS-CABO-16007683

PATIENT
  Age: 76 Year
  Sex: Male

DRUGS (19)
  1. NITROSTAT [Concomitant]
     Active Substance: NITROGLYCERIN
  2. TRIAMCINOLONE [Concomitant]
     Active Substance: TRIAMCINOLONE
  3. VITAMIN C [Concomitant]
     Active Substance: ASCORBIC ACID
  4. LYRICA [Concomitant]
     Active Substance: PREGABALIN
  5. PLAVIX [Concomitant]
     Active Substance: CLOPIDOGREL BISULFATE
  6. COREG [Concomitant]
     Active Substance: CARVEDILOL
  7. DIPHENOXYLATE/ATROPINE [Concomitant]
     Active Substance: ATROPINE\DIPHENOXYLATE
  8. ASPIRIN. [Concomitant]
     Active Substance: ASPIRIN
  9. CABOMETYX [Suspect]
     Active Substance: CABOZANTINIB S-MALATE
     Indication: RENAL CANCER
     Dosage: 40 MG, QD
     Route: 048
     Dates: start: 201610
  10. LEVOTHYROXINE. [Concomitant]
     Active Substance: LEVOTHYROXINE
  11. ONDANSETRON [Concomitant]
     Active Substance: ONDANSETRON
  12. PROCHLORPERAZINE. [Concomitant]
     Active Substance: PROCHLORPERAZINE
  13. GINSENG [Concomitant]
     Active Substance: ASIAN GINSENG
  14. DRONABINOL. [Concomitant]
     Active Substance: DRONABINOL
  15. PANTOPRAZOLE [Concomitant]
     Active Substance: PANTOPRAZOLE
  16. VENTOLIN [Concomitant]
     Active Substance: ALBUTEROL SULFATE
  17. XANAX [Concomitant]
     Active Substance: ALPRAZOLAM
  18. CRESTOR [Concomitant]
     Active Substance: ROSUVASTATIN CALCIUM
  19. DEXAMETHASONE. [Concomitant]
     Active Substance: DEXAMETHASONE

REACTIONS (1)
  - Nasopharyngitis [Unknown]

NARRATIVE: CASE EVENT DATE: 20161203
